FAERS Safety Report 5865095-7 (Version None)
Quarter: 2008Q3

REPORT INFORMATION
  Report Type: 
  Country: None (occurrence: None)
  Receive Date: 20080829
  Receipt Date: 20080821
  Transmission Date: 20090109
  Serious: Yes (Death)
  Sender: FDA-Public Use
  Company Number: A0742869A

PATIENT
  Age: 72 Year
  Sex: Female
  Weight: 66.8 kg

DRUGS (5)
  1. AVANDIA [Suspect]
     Dosage: 4MG IN THE MORNING
     Route: 048
     Dates: start: 20020927, end: 20070208
  2. METOPROLOL TARTRATE [Concomitant]
     Dates: start: 20070205
  3. CLONIDINE [Concomitant]
  4. PHENYTOIN [Concomitant]
  5. NIFEDIPINE [Concomitant]

REACTIONS (6)
  - ACUTE MYOCARDIAL INFARCTION [None]
  - CARDIAC FAILURE CONGESTIVE [None]
  - CEREBROVASCULAR ACCIDENT [None]
  - HYPERTENSION [None]
  - LIPIDS INCREASED [None]
  - RENAL FAILURE CHRONIC [None]
